FAERS Safety Report 7432828-8 (Version None)
Quarter: 2011Q2

REPORT INFORMATION
  Report Type: 
  Country: None (occurrence: None)
  Receive Date: 20110422
  Receipt Date: 20110418
  Transmission Date: 20111010
  Serious: Yes (Death)
  Sender: FDA-Public Use
  Company Number: FR-ROCHE-772103

PATIENT

DRUGS (4)
  1. MYCOPHENOLATE MOFETIL [Suspect]
     Indication: PROPHYLAXIS AGAINST GRAFT VERSUS HOST DISEASE
     Dosage: FREQUENCY: PER DAY FROM DAY 1
     Route: 048
  2. RITUXIMAB [Suspect]
     Dosage: ON DAY1 AND 8: 500MG/M2, ON DAY5: 375MG/M2
     Route: 065
  3. FLUDARABINE [Suspect]
     Dosage: FROM DAY 4 TO DAY 2
     Route: 065
  4. CYCLOSPORINE [Suspect]
     Indication: PROPHYLAXIS AGAINST GRAFT VERSUS HOST DISEASE
     Dosage: DRUG: CYCLOSPORINE A, FREQUENCY: PER DAY FROM DAY 2
     Route: 042

REACTIONS (2)
  - INFECTION [None]
  - DEATH [None]
